FAERS Safety Report 17575440 (Version 1)
Quarter: 2020Q1

REPORT INFORMATION
  Report Type: Spontaneous
  Country: US (occurrence: US)
  Receive Date: 20200317
  Receipt Date: 20200317
  Transmission Date: 20200409
  Serious: Yes (Life-Threatening, Hospitalization, Disabling, Other)
  Sender: FDA-Public Use
  Company Number: None

PATIENT
  Age: 68 Year
  Sex: Male
  Weight: 106.59 kg

DRUGS (5)
  1. RIVAROXABIN [Concomitant]
     Active Substance: RIVAROXABAN
  2. DICLOFENAC SODIUM TAB 50MG (GENERIC VOLTAREN ) [Suspect]
     Active Substance: DICLOFENAC SODIUM
     Indication: KNEE ARTHROPLASTY
     Dosage: ?          QUANTITY:1 DF DOSAGE FORM;?
     Route: 048
     Dates: start: 20200127, end: 20200129
  3. FAMOTIDINE. [Concomitant]
     Active Substance: FAMOTIDINE
  4. METOPROLOL. [Concomitant]
     Active Substance: METOPROLOL
  5. LISINOPRIL. [Concomitant]
     Active Substance: LISINOPRIL

REACTIONS (3)
  - Thrombosis [None]
  - Intracardiac thrombus [None]
  - Renal disorder [None]

NARRATIVE: CASE EVENT DATE: 20200127
